FAERS Safety Report 8304809-3 (Version None)
Quarter: 2012Q2

REPORT INFORMATION
  Report Type: 
  Country: None (occurrence: None)
  Receive Date: 20120423
  Receipt Date: 20120409
  Transmission Date: 20120825
  Serious: Yes (Other)
  Sender: FDA-Public Use
  Company Number: US-RANBAXY-2012US-55606

PATIENT

DRUGS (1)
  1. SIMVASTATIN [Suspect]
     Indication: BLOOD CHOLESTEROL
     Dosage: UNK
     Route: 065

REACTIONS (5)
  - VISION BLURRED [None]
  - HYPOAESTHESIA [None]
  - MUSCLE SPASMS [None]
  - ASTHENIA [None]
  - AMNESIA [None]
